FAERS Safety Report 7345402-9 (Version None)
Quarter: 2011Q1

REPORT INFORMATION
  Report Type: 
  Country: None (occurrence: None)
  Receive Date: 20110310
  Receipt Date: 20110213
  Transmission Date: 20110831
  Serious: No
  Sender: FDA-Public Use
  Company Number: US-B.I. PHARMACEUTICALS,INC./RIDGEFIELD-2011-BP-05446BP

PATIENT
  Sex: Female

DRUGS (1)
  1. PRADAXA [Suspect]
     Indication: ATRIAL FIBRILLATION
     Dosage: 300 MG
     Route: 048
     Dates: start: 20110117

REACTIONS (5)
  - STOMATITIS [None]
  - CANDIDIASIS [None]
  - OROPHARYNGEAL PAIN [None]
  - OESOPHAGEAL DISORDER [None]
  - PYREXIA [None]
